FAERS Safety Report 24858059 (Version 3)
Quarter: 2025Q2

REPORT INFORMATION
  Report Type: Spontaneous
  Country: US (occurrence: US)
  Receive Date: 20250117
  Receipt Date: 20250405
  Transmission Date: 20250716
  Serious: No
  Sender: SANOFI AVENTIS
  Company Number: US-SA-2025SA014178

PATIENT
  Sex: Female
  Weight: 61.36 kg

DRUGS (3)
  1. DUPIXENT [Suspect]
     Active Substance: DUPILUMAB
     Indication: Dermatitis atopic
     Dosage: 300 MG, QOW
     Route: 058
  2. TACROLIMUS [Suspect]
     Active Substance: TACROLIMUS
     Route: 065
  3. ELIDEL [Suspect]
     Active Substance: PIMECROLIMUS
     Route: 065

REACTIONS (4)
  - Peripheral swelling [Unknown]
  - Rash [Unknown]
  - Expired product administered [Unknown]
  - Inappropriate schedule of product administration [Unknown]
